FAERS Safety Report 19407291 (Version 1)
Quarter: 2021Q2

REPORT INFORMATION
  Report Type: Spontaneous
  Country: CA (occurrence: CA)
  Receive Date: 20210612
  Receipt Date: 20210612
  Transmission Date: 20210717
  Serious: Yes (Life-Threatening, Hospitalization, Other)
  Sender: FDA-Public Use
  Company Number: CA-TEVA-2021-CA-1919948

PATIENT
  Age: 88 Year
  Sex: Female
  Weight: 69 kg

DRUGS (13)
  1. CALCIUM [Concomitant]
     Active Substance: CALCIUM
  2. SYNTHROID [Concomitant]
     Active Substance: LEVOTHYROXINE SODIUM
  3. VITAMIN D [Concomitant]
     Active Substance: VITAMIN D NOS
  4. PERINDOPRIL [Concomitant]
     Active Substance: PERINDOPRIL
  5. ATORVASTATIN [Suspect]
     Active Substance: ATORVASTATIN
     Indication: DYSLIPIDAEMIA
     Dosage: 80 MILLIGRAM DAILY;
     Route: 048
  6. NASONEX [Concomitant]
     Active Substance: MOMETASONE FUROATE
  7. ASPIRIN. [Concomitant]
     Active Substance: ASPIRIN
  8. BRILINTA [Concomitant]
     Active Substance: TICAGRELOR
  9. PANTOPRAZOLE [Concomitant]
     Active Substance: PANTOPRAZOLE
  10. BISOPROLOL [Concomitant]
     Active Substance: BISOPROLOL
  11. INSULIN 30/70 [Concomitant]
  12. METFORMIN [Concomitant]
     Active Substance: METFORMIN HYDROCHLORIDE
  13. NITROGLYCERIN. [Concomitant]
     Active Substance: NITROGLYCERIN

REACTIONS (3)
  - Rhabdomyolysis [Recovered/Resolved]
  - Hepatitis [Recovered/Resolved]
  - Myositis [Recovered/Resolved]
